FAERS Safety Report 8492632 (Version 6)
Quarter: 2013Q3

REPORT INFORMATION
  Report Type: Spontaneous
  Country: US (occurrence: US)
  Receive Date: 20120403
  Receipt Date: 20130916
  Transmission Date: 20140515
  Serious: Yes (Hospitalization, Other)
  Sender: FDA-Public Use
  Company Number: US-ROCHE-784682

PATIENT
  Age: 16 Year
  Sex: Male
  Weight: 61.29 kg

DRUGS (1)
  1. ACCUTANE [Suspect]
     Indication: ACNE
     Route: 048
     Dates: start: 2002, end: 2003

REACTIONS (12)
  - Intestinal obstruction [Unknown]
  - Crohn^s disease [Unknown]
  - Inflammatory bowel disease [Unknown]
  - Stress [Unknown]
  - Depression [Unknown]
  - Anal fissure [Unknown]
  - Anal abscess [Unknown]
  - Anal fistula [Unknown]
  - Lip dry [Unknown]
  - Vision blurred [Unknown]
  - Epistaxis [Unknown]
  - Dry skin [Unknown]
